FAERS Safety Report 4826957-2 (Version None)
Quarter: 2005Q4

REPORT INFORMATION
  Report Type: 
  Country: None (occurrence: None)
  Receive Date: 20051114
  Receipt Date: 20051102
  Transmission Date: 20060501
  Serious: Yes (Other)
  Sender: FDA-Public Use
  Company Number: US-JNJFOC-20051101185

PATIENT
  Sex: Female

DRUGS (3)
  1. TYLENOL [Suspect]
     Indication: PAIN
  2. TYLENOL [Suspect]
     Indication: HEADACHE
  3. INDERAL [Concomitant]

REACTIONS (2)
  - THROAT TIGHTNESS [None]
  - URTICARIA [None]
